FAERS Safety Report 19949719 (Version 1)
Quarter: 2021Q4

REPORT INFORMATION
  Report Type: Spontaneous
  Country: US (occurrence: US)
  Receive Date: 20211011
  Receipt Date: 20211011
  Transmission Date: 20220303
  Serious: No
  Sender: FDA-Public Use
  Company Number: None

PATIENT
  Sex: Female

DRUGS (1)
  1. VUMERITY [Suspect]
     Active Substance: DIROXIMEL FUMARATE
     Indication: Multiple sclerosis
     Dosage: ?          OTHER DOSE:2 CAPSULES;
     Route: 048
     Dates: start: 20210812

REACTIONS (3)
  - Stress at work [None]
  - Multiple sclerosis [None]
  - Therapy non-responder [None]
